FAERS Safety Report 11375774 (Version 1)
Quarter: 2015Q3

REPORT INFORMATION
  Report Type: Spontaneous
  Country: CA (occurrence: CA)
  Receive Date: 20150813
  Receipt Date: 20150813
  Transmission Date: 20151125
  Serious: Yes (Death, Hospitalization, Other)
  Sender: FDA-Public Use
  Company Number: CA-BAXTER-2015BAX043092

PATIENT
  Age: 43 Year
  Sex: Male

DRUGS (1)
  1. DIANEAL PD4 SOLUTION WITH 4.25% DEXTROSE AND 2.5 MEQ/L CALCIUM [Suspect]
     Active Substance: CALCIUM CHLORIDE\DEXTROSE\MAGNESIUM CHLORIDE\SODIUM CHLORIDE\SODIUM LACTATE
     Indication: PERITONEAL DIALYSIS
     Route: 033
     Dates: end: 20150724

REACTIONS (8)
  - Death [Fatal]
  - Hypotension [Unknown]
  - Unresponsive to stimuli [Unknown]
  - Mesenteric vascular insufficiency [Unknown]
  - Cardiac arrest [Unknown]
  - Sepsis [Unknown]
  - Peritonitis bacterial [Unknown]
  - Gastrointestinal necrosis [Unknown]

NARRATIVE: CASE EVENT DATE: 20150710
